FAERS Safety Report 4427335-0 (Version None)
Quarter: 2004Q3

REPORT INFORMATION
  Report Type: 
  Country: None (occurrence: None)
  Receive Date: 20040812
  Receipt Date: 20040805
  Transmission Date: 20050211
  Serious: Yes (Life-Threatening, Hospitalization)
  Sender: FDA-Public Use
  Company Number: 2004220369JP

PATIENT
  Age: 75 Year
  Sex: Male
  Weight: 54 kg

DRUGS (9)
  1. ZYVOX [Suspect]
     Indication: PNEUMONIA STAPHYLOCOCCAL
     Dosage: 600 MG, BID, IV
     Route: 042
     Dates: start: 20031103, end: 20031114
  2. CILASTATIN SODIUM W/IMIPENEM (CILASTATIN SODIUM, IMIPENEM) [Concomitant]
  3. NAFAMOSTAT (NAFAMOSTAT MESILATE) [Concomitant]
  4. DOPAMINE HYDROCHLORIDE [Concomitant]
  5. ALBUMINAR [Concomitant]
  6. TAGAMET [Concomitant]
  7. INTRALIPOS [Concomitant]
  8. VENOGLOBULIN-IH [Concomitant]
  9. VANCOMYCIN HCL [Concomitant]

REACTIONS (3)
  - CARDIO-RESPIRATORY ARREST [None]
  - MOUTH ULCERATION [None]
  - PLATELET COUNT DECREASED [None]
